FAERS Safety Report 24466910 (Version 1)
Quarter: 2024Q4

REPORT INFORMATION
  Report Type: Report from Study
  Country: US (occurrence: US)
  Receive Date: 20241018
  Receipt Date: 20241018
  Transmission Date: 20250115
  Serious: No
  Sender: ROCHE
  Company Number: US-ROCHE-3545382

PATIENT
  Age: 82 Year
  Sex: Female

DRUGS (6)
  1. XOLAIR [Suspect]
     Active Substance: OMALIZUMAB
     Indication: Idiopathic urticaria
     Route: 058
  2. MELOXICAM [Concomitant]
     Active Substance: MELOXICAM
     Route: 048
  3. TRAMADOL [Concomitant]
     Active Substance: TRAMADOL
     Route: 048
  4. ZYRTEC [Concomitant]
     Active Substance: CETIRIZINE HYDROCHLORIDE
     Route: 048
  5. HERBALS\WITHANIA SOMNIFERA ROOT [Concomitant]
     Active Substance: HERBALS\WITHANIA SOMNIFERA ROOT
     Route: 048
  6. BONE UP [Concomitant]

REACTIONS (4)
  - Gastrooesophageal reflux disease [Unknown]
  - Lumbar spinal stenosis [Unknown]
  - Overweight [Unknown]
  - Off label use [Unknown]
